FAERS Safety Report 11238875 (Version 1)
Quarter: 2015Q3

REPORT INFORMATION
  Report Type: Spontaneous
  Country: GB (occurrence: GB)
  Receive Date: 20150706
  Receipt Date: 20150706
  Transmission Date: 20151125
  Serious: Yes (Other)
  Sender: FDA-Public Use
  Company Number: GB-ACCORD-023249

PATIENT
  Age: 49 Year
  Sex: Female
  Weight: 66.67 kg

DRUGS (4)
  1. PARACETAMOL [Concomitant]
     Active Substance: ACETAMINOPHEN
     Indication: PAIN
  2. TRAMADOL. [Concomitant]
     Active Substance: TRAMADOL
     Indication: PAIN
  3. FENTANYL. [Concomitant]
     Active Substance: FENTANYL
     Indication: PAIN
     Dosage: OCCASIONALLY ONE AT NIGHT.
  4. AMITRIPTYLINE [Suspect]
     Active Substance: AMITRIPTYLINE
     Indication: POST VIRAL FATIGUE SYNDROME
     Dosage: 10 MG/60 MG/10 MG
     Route: 048
     Dates: start: 2003

REACTIONS (18)
  - Blood immunoglobulin M abnormal [Not Recovered/Not Resolved]
  - Anxiety [Recovered/Resolved with Sequelae]
  - Palpitations [Recovered/Resolved with Sequelae]
  - Pain in extremity [Not Recovered/Not Resolved]
  - Chest pain [Not Recovered/Not Resolved]
  - Toxicity to various agents [Recovered/Resolved with Sequelae]
  - Burning sensation [Not Recovered/Not Resolved]
  - Hypokinesia [Recovered/Resolved with Sequelae]
  - Bone marrow disorder [Unknown]
  - Dyspnoea [Unknown]
  - Hyperhidrosis [Unknown]
  - Spinal pain [Not Recovered/Not Resolved]
  - Condition aggravated [Unknown]
  - Hypersensitivity [Not Recovered/Not Resolved]
  - Musculoskeletal pain [Not Recovered/Not Resolved]
  - Off label use [Unknown]
  - Paralysis [Unknown]
  - Feeling abnormal [Recovered/Resolved with Sequelae]

NARRATIVE: CASE EVENT DATE: 2012
